FAERS Safety Report 4573888-1 (Version None)
Quarter: 2005Q1

REPORT INFORMATION
  Report Type: 
  Country: None (occurrence: None)
  Receive Date: 20050203
  Receipt Date: 20050119
  Transmission Date: 20050727
  Serious: Yes (Disabling)
  Sender: FDA-Public Use
  Company Number: 05UK 0032

PATIENT
  Age: 60 Year
  Sex: Male

DRUGS (5)
  1. AGGRASTAT [Suspect]
     Indication: ACUTE CORONARY SYNDROME
     Dosage: 0.25 MG FOLLOWED BY 28 ML/HR
     Dates: start: 20050103, end: 20050103
  2. ASPIRIN [Concomitant]
  3. CLOPIDOGREL BISULFATE [Concomitant]
  4. SIMVASTATIN [Concomitant]
  5. TENECTEPLASE (TENECTEPLASE) [Concomitant]

REACTIONS (1)
  - HAEMORRHAGIC STROKE [None]
